FAERS Safety Report 14285308 (Version 1)
Quarter: 2017Q4

REPORT INFORMATION
  Report Type: Spontaneous
  Country: US (occurrence: None)
  Receive Date: 20171214
  Receipt Date: 20171214
  Transmission Date: 20180321
  Serious: Yes (Hospitalization, Other)
  Sender: FDA-Public Use
  Company Number: None

PATIENT
  Age: 65 Year
  Sex: Female

DRUGS (11)
  1. SOD BICARB [Concomitant]
  2. METHYLPRED [Concomitant]
     Active Substance: METHYLPREDNISOLONE
  3. STOOL SOFTENER (DOCUSATE) [Concomitant]
     Active Substance: DOCUSATE
  4. AMITRIPTYLINE [Concomitant]
     Active Substance: AMITRIPTYLINE
  5. TYVASO [Concomitant]
     Active Substance: TREPROSTINIL
  6. TYLENOL [Concomitant]
     Active Substance: ACETAMINOPHEN
  7. NEURONTIN [Concomitant]
     Active Substance: GABAPENTIN
  8. ALLOPURINOL. [Concomitant]
     Active Substance: ALLOPURINOL
  9. SILDENAFIL 20MG TABLETS [Suspect]
     Active Substance: SILDENAFIL
     Indication: PULMONARY ARTERIAL HYPERTENSION
     Route: 048
     Dates: start: 20170627
  10. LOSARTAN. [Concomitant]
     Active Substance: LOSARTAN
  11. FELODIPINE. [Concomitant]
     Active Substance: FELODIPINE

REACTIONS (3)
  - Pneumonia [None]
  - Drug dose omission [None]
  - Pruritus [None]

NARRATIVE: CASE EVENT DATE: 20171212
